FAERS Safety Report 5094834-0 (Version None)
Quarter: 2006Q3

REPORT INFORMATION
  Report Type: 
  Country: None (occurrence: None)
  Receive Date: 20060830
  Receipt Date: 20060830
  Transmission Date: 20061208
  Serious: No
  Sender: FDA-Public Use
  Company Number: None

PATIENT
  Age: 15 Year
  Sex: Male

DRUGS (1)
  1. POLYETHYLENE GI 3350 PWD 527G TEVA [Suspect]
     Indication: CONSTIPATION
     Dosage: MIX AND DRINK 17GMS  TWICE DAILY

REACTIONS (1)
  - PHARMACEUTICAL PRODUCT COMPLAINT [None]
